FAERS Safety Report 19082315 (Version 1)
Quarter: 2021Q2

REPORT INFORMATION
  Report Type: Spontaneous
  Country: US (occurrence: US)
  Receive Date: 20210401
  Receipt Date: 20210401
  Transmission Date: 20210717
  Serious: No
  Sender: FDA-Public Use
  Company Number: None

PATIENT
  Age: 21 Year
  Sex: Female
  Weight: 47.25 kg

DRUGS (6)
  1. MIRTAZAPINE 15MG FILM?COATED TABLETS [Suspect]
     Active Substance: MIRTAZAPINE
     Indication: INSOMNIA
     Dosage: ?          QUANTITY:1 TABLET(S);?
     Route: 048
     Dates: start: 20201205, end: 20201207
  2. MULTIVITAMIN [Concomitant]
     Active Substance: VITAMINS
  3. MIRTAZAPINE 15MG FILM?COATED TABLETS [Suspect]
     Active Substance: MIRTAZAPINE
     Indication: ANXIETY
     Dosage: ?          QUANTITY:1 TABLET(S);?
     Route: 048
     Dates: start: 20201205, end: 20201207
  4. KEPPRA [Concomitant]
     Active Substance: LEVETIRACETAM
  5. NADOLOL. [Concomitant]
     Active Substance: NADOLOL
  6. CELEXA [Concomitant]
     Active Substance: CITALOPRAM HYDROBROMIDE

REACTIONS (8)
  - Vertigo [None]
  - Nervousness [None]
  - Discomfort [None]
  - Agitation [None]
  - Hallucination, visual [None]
  - Mental impairment [None]
  - Sluggishness [None]
  - Gait inability [None]

NARRATIVE: CASE EVENT DATE: 20201205
